FAERS Safety Report 10488590 (Version 1)
Quarter: 2014Q3

REPORT INFORMATION
  Report Type: Spontaneous
  Country: US (occurrence: None)
  Receive Date: 20140815
  Receipt Date: 20140815
  Transmission Date: 20150326
  Serious: Yes (Other)
  Sender: FDA-Public Use
  Company Number: ADR-2013-01645

PATIENT
  Age: 45 Year
  Sex: Male

DRUGS (3)
  1. DILAUDID [Concomitant]
     Active Substance: HYDROMORPHONE HYDROCHLORIDE
  2. BACLOFEN. [Suspect]
     Active Substance: BACLOFEN
  3. BUPIVACAINE [Suspect]
     Active Substance: BUPIVACAINE
     Indication: MUSCLE SPASTICITY

REACTIONS (8)
  - Muscle spasticity [None]
  - Overdose [None]
  - Nervousness [None]
  - Musculoskeletal stiffness [None]
  - Underdose [None]
  - Sedation [None]
  - Drug withdrawal syndrome [None]
  - Therapeutic response decreased [None]
